FAERS Safety Report 24641847 (Version 2)
Quarter: 2025Q1

REPORT INFORMATION
  Report Type: Spontaneous
  Country: KR (occurrence: KR)
  Receive Date: 20241120
  Receipt Date: 20250122
  Transmission Date: 20250409
  Serious: No
  Sender: PFIZER
  Company Number: KR-PFIZER INC-202400305675

PATIENT

DRUGS (1)
  1. GENOTROPIN [Suspect]
     Active Substance: SOMATROPIN

REACTIONS (1)
  - Needle issue [Unknown]
